FAERS Safety Report 16413661 (Version 3)
Quarter: 2019Q2

REPORT INFORMATION
  Report Type: Spontaneous
  Country: US (occurrence: DE)
  Receive Date: 20190611
  Receipt Date: 20190625
  Transmission Date: 20190711
  Serious: Yes (Hospitalization, Other)
  Sender: FDA-Public Use
  Company Number: DE-AUROBINDO-AUR-APL-2019-031565

PATIENT

DRUGS (2)
  1. ACETYLSALICYLIC ACID [Suspect]
     Active Substance: ASPIRIN
     Indication: PRODUCT USED FOR UNKNOWN INDICATION
     Dosage: 5 GRAM, TOTAL
     Route: 048
  2. PARACETAMOL [Suspect]
     Active Substance: ACETAMINOPHEN
     Indication: PRODUCT USED FOR UNKNOWN INDICATION
     Dosage: 50 GRAM, TOTAL
     Route: 048

REACTIONS (11)
  - Maternal exposure during pregnancy [Unknown]
  - Toxicity to various agents [Unknown]
  - Metabolic acidosis [Recovered/Resolved]
  - Premature delivery [Unknown]
  - Respiratory alkalosis [Recovered/Resolved]
  - Overdose [Unknown]
  - Blood disorder [Unknown]
  - Hepatotoxicity [Unknown]
  - Intentional product misuse [Unknown]
  - Hypoacusis [Unknown]
  - Coagulation time prolonged [Recovered/Resolved]
